FAERS Safety Report 5254834-4 (Version None)
Quarter: 2007Q1

REPORT INFORMATION
  Report Type: 
  Country: None (occurrence: None)
  Receive Date: 20070305
  Receipt Date: 20070220
  Transmission Date: 20070707
  Serious: Yes (Other)
  Sender: FDA-Public Use
  Company Number: US-ELI_LILLY_AND_COMPANY-US200702003991

PATIENT
  Age: 83 Year
  Sex: Female

DRUGS (6)
  1. ZYPREXA [Suspect]
     Dosage: 2.5 MG, DAILY (1/D)
     Route: 048
     Dates: start: 20050101, end: 20070216
  2. MEGACE [Concomitant]
     Indication: APPETITE DISORDER
  3. PLAVIX [Concomitant]
     Dosage: 75 MG, UNK
  4. LOPRESSOR [Concomitant]
     Dosage: 50 MG, 2/D
  5. AMBIEN [Concomitant]
     Indication: SLEEP DISORDER
     Dosage: 5 MG, EACH EVENING
  6. LIPITOR [Concomitant]

REACTIONS (11)
  - ABNORMAL BEHAVIOUR [None]
  - ACTIVITIES OF DAILY LIVING IMPAIRED [None]
  - COAGULOPATHY [None]
  - CONDITION AGGRAVATED [None]
  - DEEP VEIN THROMBOSIS [None]
  - HEPATIC ENZYME INCREASED [None]
  - INCREASED APPETITE [None]
  - OEDEMA PERIPHERAL [None]
  - SLEEP DISORDER [None]
  - SOMNOLENCE [None]
  - TRANSIENT ISCHAEMIC ATTACK [None]
